FAERS Safety Report 5993470-9 (Version None)
Quarter: 2008Q4

REPORT INFORMATION
  Report Type: 
  Country: None (occurrence: None)
  Receive Date: 20081204
  Receipt Date: 20070710
  Transmission Date: 20090506
  Serious: Yes (Death, Hospitalization, Other)
  Sender: FDA-Public Use
  Company Number: THYM-11471

PATIENT
  Age: 79 Year
  Sex: Female
  Weight: 90.6 kg

DRUGS (2)
  1. THYMOGLOBULIN [Suspect]
     Indication: APLASTIC ANAEMIA
     Dosage: 3.5 MG/KG, QD, INTRAVENOUS
     Route: 042
     Dates: start: 20070601, end: 20070605
  2. THYMOGLOBULIN [Suspect]

REACTIONS (2)
  - SEPSIS [None]
  - THERAPEUTIC RESPONSE DECREASED [None]
